FAERS Safety Report 4407924-X (Version None)
Quarter: 2004Q3

REPORT INFORMATION
  Report Type: 
  Country: None (occurrence: None)
  Receive Date: 20040721
  Receipt Date: 20040713
  Transmission Date: 20050211
  Serious: Yes (Other)
  Sender: FDA-Public Use
  Company Number: 200410551BCA

PATIENT
  Age: 91 Year
  Sex: Male

DRUGS (2)
  1. CIPROFLOXACIN [Suspect]
     Dosage: 500 MG, BID, ORAL
     Route: 048
  2. COUMADIN [Suspect]
     Dosage: 3 MG, QD, ORAL
     Route: 048

REACTIONS (2)
  - HAEMATOMA [None]
  - HAEMOGLOBIN DECREASED [None]
